FAERS Safety Report 9804723 (Version 2)
Quarter: 2014Q1

REPORT INFORMATION
  Report Type: Report from Study
  Country: NL (occurrence: NL)
  Receive Date: 20140108
  Receipt Date: 20140108
  Transmission Date: 20141002
  Serious: Yes (Death)
  Sender: FDA-Public Use
  Company Number: NL-ABBVIE-11P-114-0843491-00

PATIENT
  Age: 70 Year
  Sex: Male

DRUGS (10)
  1. HUMIRA 40 MG/0.8 ML PEN [Suspect]
     Indication: RHEUMATOID ARTHRITIS
     Route: 058
     Dates: start: 20110711
  2. ALENDRONIC ACID [Concomitant]
     Indication: OSTEOPOROSIS PROPHYLAXIS
     Route: 048
     Dates: start: 2009
  3. CALCIUM CARBONATE W/COLECALCIFEROL [Concomitant]
     Indication: OSTEOPOROSIS PROPHYLAXIS
     Dosage: 1.25MG/400IU
     Route: 048
     Dates: start: 2009
  4. ETANERCEPT [Concomitant]
     Indication: RHEUMATOID ARTHRITIS
     Dosage: 50MG/ML DISPOSABLE SYRINGE, 1ML
     Route: 058
     Dates: end: 201107
  5. FOLIC ACID [Concomitant]
     Indication: POLYMEDICATION
     Route: 048
     Dates: start: 2009
  6. LERCANIDIPINE [Concomitant]
     Indication: HYPERTENSION
     Dosage: EC
     Route: 048
  7. METHOTREXATE [Concomitant]
     Indication: RHEUMATOID ARTHRITIS
     Route: 048
     Dates: start: 2009
  8. PREDNISOLON [Concomitant]
     Indication: RHEUMATOID ARTHRITIS
     Route: 048
     Dates: start: 2009
  9. TRAMADOLE [Concomitant]
     Indication: ARTHRALGIA
     Route: 048
     Dates: start: 201102
  10. VALSARTAN/HYDROCHLOORTHIAZIDE [Concomitant]
     Indication: HYPERTENSION
     Dosage: EC 320/25MG
     Route: 048

REACTIONS (2)
  - Death [Fatal]
  - Hiccups [Recovered/Resolved]
